FAERS Safety Report 4939386-8 (Version None)
Quarter: 2006Q1

REPORT INFORMATION
  Report Type: 
  Country: None (occurrence: None)
  Receive Date: 20060306
  Receipt Date: 20060216
  Transmission Date: 20060701
  Serious: Yes (Hospitalization)
  Sender: FDA-Public Use
  Company Number: DSA_27801_2006

PATIENT
  Age: 44 Year
  Sex: Male

DRUGS (9)
  1. TAVOR /00273201/ [Suspect]
     Dosage: DF ONCE PO
     Route: 048
     Dates: start: 20060216, end: 20060216
  2. ALPRAZOLAM [Suspect]
     Dosage: 5 MG ONCE PO
     Route: 048
     Dates: start: 20060216, end: 20060216
  3. AMITRIPTYLINE HCL [Suspect]
     Dosage: 10 TAB ONCE PO
     Route: 048
     Dates: start: 20060216, end: 20060216
  4. CITALOPRAM HYDROBROMIDE [Suspect]
     Dosage: 58 TAB ONCE PO
     Route: 048
     Dates: start: 20060216, end: 20060216
  5. NITRAZEPAM [Suspect]
     Dosage: 10 TAB ONCE PO
     Route: 048
     Dates: start: 20060216, end: 20060216
  6. TRIFLUOPERAZINE HCL [Suspect]
     Dosage: 3 TAB ONCE PO
     Route: 048
     Dates: start: 20060216, end: 20060216
  7. CYPROHEPTADINE HCL [Suspect]
     Dosage: DF ONCE PO
     Route: 048
     Dates: start: 20060216, end: 20060216
  8. MIRTAZAPINE [Suspect]
     Dosage: DF ONCE PO
     Route: 048
     Dates: start: 20060216, end: 20060216
  9. BENZODIAZEPINES [Suspect]
     Dosage: DF
     Dates: start: 20060216, end: 20060216

REACTIONS (4)
  - HYPOAESTHESIA [None]
  - MULTIPLE DRUG OVERDOSE INTENTIONAL [None]
  - SENSORY LOSS [None]
  - SUICIDE ATTEMPT [None]
